FAERS Safety Report 5919859-1 (Version None)
Quarter: 2008Q4

REPORT INFORMATION
  Report Type: 
  Country: None (occurrence: None)
  Receive Date: 20081015
  Receipt Date: 20081003
  Transmission Date: 20090506
  Serious: Yes (Other)
  Sender: FDA-Public Use
  Company Number: NL-PFIZER INC-2008084793

PATIENT
  Sex: Male
  Weight: 76 kg

DRUGS (2)
  1. AZITHROMYCIN [Suspect]
     Indication: RESPIRATORY TRACT INFECTION
     Dosage: TEXT:500MG
     Route: 048
     Dates: start: 20080829, end: 20080831
  2. PHENYTOIN [Concomitant]
     Route: 048
     Dates: start: 20080603

REACTIONS (2)
  - DRUG INTERACTION [None]
  - EPILEPSY [None]
